FAERS Safety Report 5825531-9 (Version None)
Quarter: 2008Q3

REPORT INFORMATION
  Report Type: 
  Country: None (occurrence: None)
  Receive Date: 20080723
  Receipt Date: 20080709
  Transmission Date: 20090109
  Serious: Yes (Other)
  Sender: FDA-Public Use
  Company Number: CAR_00202_2008

PATIENT
  Age: 21 Year
  Sex: Female
  Weight: 55.3388 kg

DRUGS (6)
  1. DICLOFENAC SODIUM [Suspect]
     Indication: PAIN
     Dosage: 75 MG QD ORAL
     Route: 048
     Dates: start: 20080601, end: 20080629
  2. DICLOFENAC SODIUM [Suspect]
     Indication: PAIN
     Dosage: 75 MG QD ORAL
     Route: 048
     Dates: start: 20080706, end: 20080706
  3. LEXAPRO [Concomitant]
  4. CONTRACEPTIVES NOS [Concomitant]
  5. GLUCOSAMINE [Concomitant]
  6. FISH OIL [Concomitant]

REACTIONS (10)
  - ABDOMINAL PAIN UPPER [None]
  - DYSKINESIA [None]
  - DYSPNOEA [None]
  - FATIGUE [None]
  - FEELING ABNORMAL [None]
  - HOT FLUSH [None]
  - HYPERSOMNIA [None]
  - NONSPECIFIC REACTION [None]
  - PALPITATIONS [None]
  - TREMOR [None]
